FAERS Safety Report 7217944-8 (Version None)
Quarter: 2011Q1

REPORT INFORMATION
  Report Type: 
  Country: None (occurrence: None)
  Receive Date: 20110110
  Receipt Date: 20110104
  Transmission Date: 20110831
  Serious: Yes (Other)
  Sender: FDA-Public Use
  Company Number: A0891363A

PATIENT
  Age: 17 Year
  Sex: Female
  Weight: 63.1 kg

DRUGS (12)
  1. ORTHO-NOVUM [Concomitant]
  2. ADDERALL XR 10 [Concomitant]
  3. ADDERALL 10 [Concomitant]
  4. MULTIVITAMIN [Concomitant]
  5. TRAZODONE [Concomitant]
  6. ZOLOFT [Suspect]
     Indication: DEPRESSION
     Route: 065
  7. EFFEXOR XR [Suspect]
     Indication: SUICIDAL IDEATION
     Route: 065
  8. WELLBUTRIN XL [Concomitant]
  9. ZANTAC [Concomitant]
  10. LORCET-HD [Concomitant]
  11. FLEXERIL [Concomitant]
  12. PAXIL [Suspect]
     Indication: DEPRESSION
     Route: 065

REACTIONS (10)
  - DRUG EFFECT DECREASED [None]
  - DRUG ABUSE [None]
  - SINUS HEADACHE [None]
  - ASTHENIA [None]
  - APATHY [None]
  - SUICIDAL IDEATION [None]
  - PHOTOPHOBIA [None]
  - VISUAL IMPAIRMENT [None]
  - DEPRESSION [None]
  - ANXIETY [None]
